FAERS Safety Report 9061925 (Version 1)
Quarter: 2013Q1

REPORT INFORMATION
  Report Type: Spontaneous
  Country: US (occurrence: None)
  Receive Date: 20130118
  Receipt Date: 20130118
  Transmission Date: 20140127
  Serious: Yes (Death)
  Sender: FDA-Public Use
  Company Number: 2013P1000396

PATIENT
  Age: 41 Year
  Sex: Female

DRUGS (5)
  1. BUTALBITAL, ACETAMINOPHEN + CAFFEINE [Suspect]
     Indication: COMPLETED SUICIDE
     Route: 048
  2. CLONIDINE [Suspect]
     Indication: COMPLETED SUICIDE
     Route: 048
  3. VERAPAMIL [Suspect]
     Indication: COMPLETED SUICIDE
     Route: 048
  4. CITALOPRAM [Suspect]
     Indication: COMPLETED SUICIDE
     Route: 048
  5. ETHANOL [Suspect]
     Indication: COMPLETED SUICIDE
     Route: 048

REACTIONS (2)
  - Intentional drug misuse [None]
  - Completed suicide [None]
